FAERS Safety Report 10951365 (Version 4)
Quarter: 2015Q2

REPORT INFORMATION
  Report Type: Report from Study
  Country: BR (occurrence: BR)
  Receive Date: 20150324
  Receipt Date: 20150519
  Transmission Date: 20150821
  Serious: Yes (Other)
  Sender: FDA-Public Use
  Company Number: PHHY2015BR033573

PATIENT
  Sex: Female
  Weight: 102 kg

DRUGS (1)
  1. SANDOSTATIN LAR DEPOT [Suspect]
     Active Substance: OCTREOTIDE ACETATE
     Indication: ACROMEGALY
     Dosage: 1 AMPOULE EVERY 28 DAYS
     Route: 065
     Dates: start: 201205

REACTIONS (10)
  - Paraesthesia [Not Recovered/Not Resolved]
  - Seborrhoea [Not Recovered/Not Resolved]
  - Body height decreased [Unknown]
  - Blood growth hormone increased [Not Recovered/Not Resolved]
  - Weight decreased [Unknown]
  - Neoplasm progression [Unknown]
  - Insulin-like growth factor increased [Not Recovered/Not Resolved]
  - Weight increased [Not Recovered/Not Resolved]
  - Headache [Not Recovered/Not Resolved]
  - Wrong technique in drug usage process [Unknown]

NARRATIVE: CASE EVENT DATE: 2013
